FAERS Safety Report 4674018-8 (Version None)
Quarter: 2005Q2

REPORT INFORMATION
  Report Type: 
  Country: None (occurrence: None)
  Receive Date: 20050525
  Receipt Date: 20050518
  Transmission Date: 20051028
  Serious: Yes (Hospitalization)
  Sender: FDA-Public Use
  Company Number: 2005058809

PATIENT
  Age: 71 Year
  Sex: Female

DRUGS (1)
  1. CITALOR (ATORVASTATIN) [Suspect]
     Indication: BLOOD CHOLESTEROL INCREASED
     Dosage: 10 MG (10 MG, EVERY OTHER  DAY), ORAL
     Route: 048
     Dates: start: 20050101

REACTIONS (1)
  - RETINAL DISORDER [None]
